FAERS Safety Report 11093772 (Version 1)
Quarter: 2015Q2

REPORT INFORMATION
  Report Type: Spontaneous
  Country: DE (occurrence: DE)
  Receive Date: 20150506
  Receipt Date: 20150506
  Transmission Date: 20150821
  Serious: Yes (Other)
  Sender: FDA-Public Use
  Company Number: DE-PFIZER INC-2015150290

PATIENT
  Age: 44 Year
  Sex: Female
  Weight: 56 kg

DRUGS (1)
  1. SOBELIN [Suspect]
     Active Substance: CLINDAMYCIN HYDROCHLORIDE
     Indication: STREPTOCOCCAL INFECTION
     Dosage: APPLICATOR
     Dates: start: 20150420

REACTIONS (7)
  - Abdominal pain [Unknown]
  - Micturition urgency [Unknown]
  - Dizziness [Unknown]
  - Diarrhoea [Unknown]
  - Uterine haemorrhage [Unknown]
  - Dry skin [Unknown]
  - Headache [Unknown]

NARRATIVE: CASE EVENT DATE: 20150420
